FAERS Safety Report 26167600 (Version 1)
Quarter: 2025Q4

REPORT INFORMATION
  Report Type: Spontaneous
  Country: EU (occurrence: EU)
  Receive Date: 20251217
  Receipt Date: 20251217
  Transmission Date: 20260117
  Serious: Yes (Hospitalization, Other)
  Sender: BAXTER
  Company Number: None

PATIENT
  Age: 77 Year
  Sex: Male

DRUGS (4)
  1. DOXORUBICIN [Suspect]
     Active Substance: DOXORUBICIN
     Indication: Bladder cancer
     Dosage: 56 MG, 1 CYCLICAL
     Route: 042
     Dates: start: 20250214, end: 20250408
  2. METHOTREXATE [Suspect]
     Active Substance: METHOTREXATE
     Indication: Bladder cancer
     Dosage: 57 MG, 1 CYCLICAL
     Route: 042
     Dates: start: 20250214, end: 20250408
  3. VINBLASTINE SULFATE [Suspect]
     Active Substance: VINBLASTINE SULFATE
     Indication: Bladder cancer
     Dosage: 5.5 MG, 1 CYCLICAL
     Route: 042
     Dates: start: 20250214, end: 20250408
  4. CISPLATIN [Suspect]
     Active Substance: CISPLATIN
     Indication: Bladder cancer
     Dosage: 134 MG, 1 CYCLICAL
     Route: 042
     Dates: start: 20250214, end: 20250408

REACTIONS (2)
  - Interstitial lung disease [Not Recovered/Not Resolved]
  - Interstitial lung disease [Not Recovered/Not Resolved]
